FAERS Safety Report 24983893 (Version 1)
Quarter: 2025Q1

REPORT INFORMATION
  Report Type: Spontaneous
  Country: AU (occurrence: AU)
  Receive Date: 20250219
  Receipt Date: 20250219
  Transmission Date: 20250409
  Serious: Yes (Other)
  Sender: GLAND PHARMA LTD
  Company Number: AU-GLANDPHARMA-AU-2025GLNLIT00241

PATIENT
  Age: 7 Decade
  Sex: Male

DRUGS (2)
  1. CARBOPLATIN [Suspect]
     Active Substance: CARBOPLATIN
     Indication: Prostate cancer metastatic
     Route: 065
  2. PACLITAXEL [Suspect]
     Active Substance: PACLITAXEL
     Indication: Prostate cancer metastatic
     Route: 065

REACTIONS (5)
  - Deep vein thrombosis [Unknown]
  - Febrile neutropenia [Unknown]
  - Pulmonary embolism [Unknown]
  - Anal fissure [Unknown]
  - Product use in unapproved indication [Unknown]
